FAERS Safety Report 5522653-7 (Version None)
Quarter: 2007Q4

REPORT INFORMATION
  Report Type: 
  Country: None (occurrence: None)
  Receive Date: 20071120
  Receipt Date: 20071119
  Transmission Date: 20080405
  Serious: Yes (Other)
  Sender: FDA-Public Use
  Company Number: US-SHR-US-2007-013248

PATIENT
  Age: 48 Year
  Sex: Female

DRUGS (9)
  1. BETASERON [Suspect]
     Dosage: 8 MIU, EVERY 2D
     Route: 058
     Dates: start: 20041104, end: 20070101
  2. BETASERON [Suspect]
     Dosage: 8 MIU, EVERY 2D
     Route: 058
     Dates: start: 20070101
  3. IBUPROFEN TABLETS [Concomitant]
  4. ACYCLOVIR [Concomitant]
  5. ANTIHISTAMINES [Concomitant]
  6. DIETARY SUPPLEMENT [Concomitant]
  7. VITAMIN D [Concomitant]
  8. CALCIUM [Concomitant]
  9. EVENING PRIMROSE OIL [Concomitant]

REACTIONS (3)
  - CONJUNCTIVITIS [None]
  - HAEMATOCHEZIA [None]
  - HAEMORRHAGIC ANAEMIA [None]
